FAERS Safety Report 24232424 (Version 1)
Quarter: 2024Q3

REPORT INFORMATION
  Report Type: Spontaneous
  Country: GB (occurrence: None)
  Receive Date: 20240821
  Receipt Date: 20240821
  Transmission Date: 20241017
  Serious: Yes (Life-Threatening, Hospitalization, Other)
  Sender: ORION
  Company Number: None

PATIENT
  Age: 58 Year
  Sex: Female
  Weight: 96 kg

DRUGS (22)
  1. METHOTREXATE [Interacting]
     Active Substance: METHOTREXATE
     Indication: Rheumatoid arthritis
  2. METHOTREXATE [Interacting]
     Active Substance: METHOTREXATE
     Dates: start: 20240815, end: 20240818
  3. LANSOPRAZOLE [Interacting]
     Active Substance: LANSOPRAZOLE
     Indication: Product used for unknown indication
  4. CYANOCOBALAMIN [Concomitant]
     Active Substance: CYANOCOBALAMIN
     Indication: Anaemia vitamin B12 deficiency
  5. LANTUS [Concomitant]
     Active Substance: INSULIN GLARGINE
  6. POLYETHYLENE GLYCOL 3350\POTASSIUM CHLORIDE\SODIUM BICARBONATE\SODIUM [Concomitant]
     Active Substance: POLYETHYLENE GLYCOL 3350\POTASSIUM CHLORIDE\SODIUM BICARBONATE\SODIUM CHLORIDE
  7. SENNA [Concomitant]
     Active Substance: SENNA LEAF\SENNOSIDES\SENNOSIDES A AND B
  8. RAMIPRIL [Concomitant]
     Active Substance: RAMIPRIL
  9. GABAPENTIN [Concomitant]
     Active Substance: GABAPENTIN
  10. DOCUSATE [Concomitant]
     Active Substance: DOCUSATE
  11. FERROUS FUMARATE [Concomitant]
     Active Substance: FERROUS FUMARATE
  12. METFORMIN [Concomitant]
     Active Substance: METFORMIN HYDROCHLORIDE
  13. METFORMIN [Concomitant]
     Active Substance: METFORMIN HYDROCHLORIDE
  14. ALLOPURINOL [Concomitant]
     Active Substance: ALLOPURINOL
  15. MONTELUKAST [Concomitant]
     Active Substance: MONTELUKAST SODIUM
  16. ACETAMINOPHEN [Concomitant]
     Active Substance: ACETAMINOPHEN
  17. DULOXETINE [Concomitant]
     Active Substance: DULOXETINE
  18. ATORVASTATIN [Concomitant]
     Active Substance: ATORVASTATIN
  19. RIVAROXABAN [Concomitant]
     Active Substance: RIVAROXABAN
  20. ALBUTEROL [Concomitant]
     Active Substance: ALBUTEROL
  21. CHOLECALCIFEROL [Concomitant]
     Active Substance: CHOLECALCIFEROL
  22. BECLOMETHASONE [Concomitant]
     Active Substance: BECLOMETHASONE

REACTIONS (12)
  - Drug interaction [Unknown]
  - Labelled drug-drug interaction medication error [Unknown]
  - Product prescribing error [Unknown]
  - Metabolic acidosis [Unknown]
  - Myalgia [Unknown]
  - Acute kidney injury [Not Recovered/Not Resolved]
  - Urinary retention [Unknown]
  - Malaise [Unknown]
  - Vomiting [Unknown]
  - Pruritus [Unknown]
  - Feeling abnormal [Unknown]
  - Alanine aminotransferase increased [Unknown]

NARRATIVE: CASE EVENT DATE: 20240716
